FAERS Safety Report 5487536-X (Version None)
Quarter: 2007Q4

REPORT INFORMATION
  Report Type: 
  Country: None (occurrence: None)
  Receive Date: 20071016
  Receipt Date: 20071004
  Transmission Date: 20080405
  Serious: Yes (Hospitalization)
  Sender: FDA-Public Use
  Company Number: FR-PFIZER INC-2007084504

PATIENT
  Sex: Male

DRUGS (9)
  1. TRIFLUCAN [Suspect]
     Route: 048
  2. TAXOTERE [Suspect]
     Route: 042
  3. CISPLATIN [Suspect]
     Route: 042
  4. ALFUZOSIN HYDROCHLORIDE [Concomitant]
  5. SOLU-MEDROL [Concomitant]
  6. SOLU-MEDROL [Concomitant]
  7. OGAST [Concomitant]
  8. COLCHIMAX [Concomitant]
  9. ALLOPURINOL [Concomitant]

REACTIONS (3)
  - HEPATIC ENZYME INCREASED [None]
  - HYPERBILIRUBINAEMIA [None]
  - JAUNDICE [None]
